FAERS Safety Report 15565891 (Version 1)
Quarter: 2018Q4

REPORT INFORMATION
  Report Type: Spontaneous
  Country: FR (occurrence: FR)
  Receive Date: 20181030
  Receipt Date: 20181030
  Transmission Date: 20190205
  Serious: Yes (Other)
  Sender: FDA-Public Use
  Company Number: FR-BRISTOL-MYERS SQUIBB COMPANY-BMS-2018-099263

PATIENT
  Age: 66 Year
  Sex: Male
  Weight: 69 kg

DRUGS (1)
  1. OPDIVO [Suspect]
     Active Substance: NIVOLUMAB
     Indication: LUNG ADENOCARCINOMA
     Dosage: 200 MG, INTERVAL OF 1 TOTAL
     Route: 042
     Dates: start: 20180820, end: 20180820

REACTIONS (2)
  - Anxiety disorder [Recovered/Resolved]
  - Suicidal ideation [Recovered/Resolved]

NARRATIVE: CASE EVENT DATE: 20180821
